FAERS Safety Report 5045177-2 (Version None)
Quarter: 2006Q3

REPORT INFORMATION
  Report Type: 
  Country: None (occurrence: None)
  Receive Date: 20060705
  Receipt Date: 20060613
  Transmission Date: 20061208
  Serious: Yes (Other)
  Sender: FDA-Public Use
  Company Number: US200605006795

PATIENT
  Age: 62 Year
  Sex: Female
  Weight: 110.7 kg

DRUGS (2)
  1. FORTEO [Suspect]
     Indication: OSTEOPOROSIS
     Dosage: 20 UG DAILY (1/D)
     Dates: start: 20050531
  2. FORTEO [Concomitant]

REACTIONS (2)
  - B-CELL LYMPHOMA RECURRENT [None]
  - PHARMACEUTICAL PRODUCT COMPLAINT [None]
